FAERS Safety Report 6497085-8 (Version None)
Quarter: 2009Q4

REPORT INFORMATION
  Report Type: 
  Country: None (occurrence: None)
  Receive Date: 20091215
  Receipt Date: 20090227
  Transmission Date: 20100525
  Serious: No
  Sender: FDA-Public Use
  Company Number: A0770923A

PATIENT
  Age: 83 Year
  Sex: Male

DRUGS (9)
  1. AVODART [Suspect]
     Indication: BENIGN PROSTATIC HYPERPLASIA
     Dosage: .5MG PER DAY
     Route: 048
     Dates: start: 20080801
  2. GLIPIZIDE [Concomitant]
  3. AVAPRO [Concomitant]
  4. SIMVASTATIN [Concomitant]
  5. CHONDROITIN/GLUCOSAMINE [Concomitant]
  6. CENTRUM SILVER [Concomitant]
  7. ASPIRIN [Concomitant]
  8. SAW PALMETTO [Concomitant]
  9. ESTER-C [Concomitant]

REACTIONS (1)
  - DRUG INEFFECTIVE [None]
